FAERS Safety Report 5251133-1 (Version None)
Quarter: 2007Q1

REPORT INFORMATION
  Report Type: 
  Country: None (occurrence: None)
  Receive Date: 20070228
  Receipt Date: 20060831
  Transmission Date: 20070707
  Serious: No
  Sender: FDA-Public Use
  Company Number: US-GLAXOSMITHKLINE-A0618772A

PATIENT
  Sex: Female

DRUGS (10)
  1. LAMICTAL [Suspect]
     Indication: BIPOLAR DISORDER
     Dosage: 100MG TWICE PER DAY
     Route: 048
     Dates: start: 20060201, end: 20060717
  2. PAROXETINE HCL [Concomitant]
  3. WELLBUTRIN [Concomitant]
  4. PREVACID [Concomitant]
  5. TRAZODONE HCL [Concomitant]
  6. CELEBREX [Concomitant]
  7. LEVSIN [Concomitant]
  8. AVANDIA [Concomitant]
  9. LIPITOR [Concomitant]
  10. ZELNORM [Concomitant]

REACTIONS (1)
  - RASH [None]
